FAERS Safety Report 6332180-5 (Version None)
Quarter: 2009Q3

REPORT INFORMATION
  Report Type: 
  Country: None (occurrence: None)
  Receive Date: 20090828
  Receipt Date: 20090820
  Transmission Date: 20100115
  Serious: Yes (Hospitalization)
  Sender: FDA-Public Use
  Company Number: GB-ASTRAZENECA-2009SE09107

PATIENT
  Age: 60 Year
  Sex: Female

DRUGS (5)
  1. ZOLMITRIPTAN [Suspect]
     Indication: MIGRAINE
     Route: 045
     Dates: start: 20040101, end: 20080731
  2. ASPIRIN [Concomitant]
     Route: 048
  3. BISOPROLOL [Concomitant]
     Route: 048
  4. SIMVASTATIN [Concomitant]
     Route: 048
  5. TIBOLONE [Concomitant]
     Route: 048

REACTIONS (1)
  - ANGINA UNSTABLE [None]
